FAERS Safety Report 11242089 (Version 1)
Quarter: 2015Q3

REPORT INFORMATION
  Report Type: Spontaneous
  Country: FR (occurrence: FR)
  Receive Date: 20150706
  Receipt Date: 20150706
  Transmission Date: 20151125
  Serious: Yes (Hospitalization)
  Sender: FDA-Public Use
  Company Number: FR-SA-2015SA093413

PATIENT
  Age: 93 Year
  Sex: Female

DRUGS (8)
  1. CANDESARTAN CILEXETIL. [Suspect]
     Active Substance: CANDESARTAN CILEXETIL
     Indication: HYPERTENSION
     Route: 048
     Dates: start: 201502, end: 201504
  2. XARELTO [Suspect]
     Active Substance: RIVAROXABAN
     Route: 048
     Dates: start: 2015, end: 201504
  3. MONICOR [Suspect]
     Active Substance: ISOSORBIDE MONONITRATE
     Route: 048
     Dates: end: 201502
  4. PREVISCAN [Suspect]
     Active Substance: FLUINDIONE
     Route: 048
     Dates: end: 201502
  5. DIGOXINE NATIVELLE [Suspect]
     Active Substance: DIGOXIN
     Route: 048
     Dates: end: 201501
  6. CHLORAMINOPHENE [Suspect]
     Active Substance: CHLORAMBUCIL
     Indication: CHRONIC LYMPHOCYTIC LEUKAEMIA
     Route: 048
     Dates: start: 201009, end: 201309
  7. LASILIX [Suspect]
     Active Substance: FUROSEMIDE
     Indication: HYPERTENSION
     Route: 048
  8. MABTHERA [Suspect]
     Active Substance: RITUXIMAB
     Indication: CHRONIC LYMPHOCYTIC LEUKAEMIA
     Route: 042
     Dates: start: 201009, end: 201309

REACTIONS (1)
  - Interstitial lung disease [Not Recovered/Not Resolved]

NARRATIVE: CASE EVENT DATE: 201504
